FAERS Safety Report 9803867 (Version 1)
Quarter: 2014Q1

REPORT INFORMATION
  Report Type: Spontaneous
  Country: US (occurrence: US)
  Receive Date: 20140108
  Receipt Date: 20140108
  Transmission Date: 20141002
  Serious: No
  Sender: FDA-Public Use
  Company Number: US-VERTEX PHARMACEUTICALS INC-2013-012092

PATIENT
  Age: 52 Year
  Sex: Male
  Weight: 104 kg

DRUGS (10)
  1. INCIVEK [Suspect]
     Indication: HEPATITIS C
     Dosage: 1125 MG, BID
     Route: 048
     Dates: start: 201305
  2. INCIVEK [Suspect]
     Dosage: 1125 MG, BID
     Route: 048
     Dates: start: 201310
  3. RIBAVIRIN [Suspect]
     Indication: HEPATITIS C
     Dosage: 3 DF, BID
     Dates: start: 201305
  4. RIBAVIRIN [Suspect]
     Dosage: 3 DF, BID
     Dates: start: 201310
  5. PEGASYS [Suspect]
     Indication: HEPATITIS C
     Dosage: 180 ?G, QW
     Dates: start: 201305
  6. PEGASYS [Suspect]
     Dosage: 180 ?G, QW
     Dates: start: 201310
  7. NOVOLOG [Concomitant]
     Indication: DIABETES MELLITUS
     Dosage: 70/30
  8. SIMVASTATIN [Concomitant]
     Indication: BLOOD CHOLESTEROL
  9. LISINOPRIL [Concomitant]
     Indication: BLOOD PRESSURE
     Dosage: 20 MG, UNK
  10. LYRICA [Concomitant]
     Indication: DIABETES MELLITUS
     Dosage: 75 MG, UNK

REACTIONS (1)
  - Drug administration error [Unknown]
